FAERS Safety Report 16057969 (Version 1)
Quarter: 2019Q1

REPORT INFORMATION
  Report Type: Spontaneous
  Country: JP (occurrence: JP)
  Receive Date: 20190311
  Receipt Date: 20190311
  Transmission Date: 20190418
  Serious: Yes (Hospitalization)
  Sender: FDA-Public Use
  Company Number: JP-ARBOR PHARMACEUTICALS, LLC-JP-2019ARB000310

PATIENT
  Age: 41 Year
  Sex: Male

DRUGS (1)
  1. GLIADEL [Suspect]
     Active Substance: CARMUSTINE
     Indication: GLIOBLASTOMA
     Dosage: UNK
     Dates: start: 20190124, end: 20190205

REACTIONS (2)
  - Pneumocephalus [Recovering/Resolving]
  - Brain oedema [Recovering/Resolving]

NARRATIVE: CASE EVENT DATE: 10190205
